FAERS Safety Report 12260778 (Version 1)
Quarter: 2016Q2

REPORT INFORMATION
  Report Type: Spontaneous
  Country: US (occurrence: US)
  Receive Date: 20160412
  Receipt Date: 20160412
  Transmission Date: 20160815
  Serious: No
  Sender: FDA-Public Use
  Company Number: US-INCYTE CORPORATION-2015IN006759

PATIENT
  Sex: Female
  Weight: 72 kg

DRUGS (11)
  1. FERROUS SULFATE. [Concomitant]
     Active Substance: FERROUS SULFATE
  2. VAGIFEM [Concomitant]
     Active Substance: ESTRADIOL
  3. JAKAFI [Suspect]
     Active Substance: RUXOLITINIB
     Dosage: 10 MG, BID
     Route: 048
     Dates: start: 20150911
  4. FOLIC ACID. [Concomitant]
     Active Substance: FOLIC ACID
  5. HYDROXYUREA. [Concomitant]
     Active Substance: HYDROXYUREA
  6. PREDNISONE. [Concomitant]
     Active Substance: PREDNISONE
  7. CLOBEX                             /00337102/ [Concomitant]
  8. NEXIUM [Concomitant]
     Active Substance: ESOMEPRAZOLE MAGNESIUM
  9. LATISSE [Concomitant]
     Active Substance: BIMATOPROST
  10. ASPIRIN. [Concomitant]
     Active Substance: ASPIRIN
  11. VITAMIN D                          /00107901/ [Concomitant]
     Active Substance: ERGOCALCIFEROL

REACTIONS (3)
  - Platelet count increased [Unknown]
  - Abdominal distension [Unknown]
  - Frequent bowel movements [Unknown]
